FAERS Safety Report 4561491-9 (Version None)
Quarter: 2005Q1

REPORT INFORMATION
  Report Type: 
  Country: None (occurrence: None)
  Receive Date: 20050121
  Receipt Date: 20050104
  Transmission Date: 20050727
  Serious: Yes (Death, Hospitalization, Other)
  Sender: FDA-Public Use
  Company Number: USA050187421

PATIENT
  Age: 82 Year
  Sex: Male

DRUGS (1)
  1. FORTEO [Suspect]
     Indication: OSTEOPOROSIS
     Dates: start: 20040201, end: 20040812

REACTIONS (3)
  - DIABETES MELLITUS [None]
  - GASTROINTESTINAL DISORDER [None]
  - PNEUMONIA [None]
